FAERS Safety Report 7608521-5 (Version None)
Quarter: 2011Q3

REPORT INFORMATION
  Report Type: 
  Country: None (occurrence: None)
  Receive Date: 20110713
  Receipt Date: 20110713
  Transmission Date: 20111222
  Serious: Yes (Death, Hospitalization)
  Sender: FDA-Public Use
  Company Number: None

PATIENT
  Age: 61 Year
  Sex: Female
  Weight: 57.1532 kg

DRUGS (1)
  1. VORINOSTAT 300MG PO [Suspect]
     Indication: MULTIPLE MYELOMA
     Dosage: 300MG
     Dates: start: 20110707, end: 20110708

REACTIONS (2)
  - PYREXIA [None]
  - DYSPNOEA [None]
